FAERS Safety Report 8427272-0 (Version None)
Quarter: 2012Q2

REPORT INFORMATION
  Report Type: 
  Country: None (occurrence: None)
  Receive Date: 20120611
  Receipt Date: 20120604
  Transmission Date: 20120825
  Serious: Yes (Hospitalization)
  Sender: FDA-Public Use
  Company Number: US-GLAXOSMITHKLINE-A0980652A

PATIENT
  Age: 45 Year
  Sex: Female

DRUGS (3)
  1. ALBUTEROL [Suspect]
     Route: 055
  2. FLOLAN [Suspect]
     Dosage: 39.27MGKM UNKNOWN
     Route: 042
     Dates: start: 20060407
  3. COMBIVENT [Suspect]
     Route: 055

REACTIONS (3)
  - LUNG DISORDER [None]
  - BRONCHITIS [None]
  - HEADACHE [None]
